FAERS Safety Report 18868209 (Version 12)
Quarter: 2025Q2

REPORT INFORMATION
  Report Type: Report from Study
  Country: CA (occurrence: CA)
  Receive Date: 20210209
  Receipt Date: 20250626
  Transmission Date: 20250716
  Serious: Yes (Disabling, Other)
  Sender: TAKEDA
  Company Number: CA-TAKEDA-2017TUS010861

PATIENT
  Age: 81 Year
  Sex: Female

DRUGS (27)
  1. VEDOLIZUMAB [Suspect]
     Active Substance: VEDOLIZUMAB
     Indication: Colitis ulcerative
  2. VEDOLIZUMAB [Suspect]
     Active Substance: VEDOLIZUMAB
  3. VEDOLIZUMAB [Suspect]
     Active Substance: VEDOLIZUMAB
  4. VEDOLIZUMAB [Suspect]
     Active Substance: VEDOLIZUMAB
  5. VEDOLIZUMAB [Suspect]
     Active Substance: VEDOLIZUMAB
  6. VEDOLIZUMAB [Suspect]
     Active Substance: VEDOLIZUMAB
  7. VEDOLIZUMAB [Suspect]
     Active Substance: VEDOLIZUMAB
  8. VEDOLIZUMAB [Suspect]
     Active Substance: VEDOLIZUMAB
  9. VEDOLIZUMAB [Suspect]
     Active Substance: VEDOLIZUMAB
  10. VEDOLIZUMAB [Suspect]
     Active Substance: VEDOLIZUMAB
  11. VEDOLIZUMAB [Suspect]
     Active Substance: VEDOLIZUMAB
  12. VEDOLIZUMAB [Suspect]
     Active Substance: VEDOLIZUMAB
  13. VEDOLIZUMAB [Suspect]
     Active Substance: VEDOLIZUMAB
  14. VEDOLIZUMAB [Suspect]
     Active Substance: VEDOLIZUMAB
  15. PERINDOPRIL [Suspect]
     Active Substance: PERINDOPRIL
     Indication: Product used for unknown indication
     Dosage: 4 MILLIGRAM, QD
  16. PREDNISONE [Concomitant]
     Active Substance: PREDNISONE
  17. PREDNISONE [Concomitant]
     Active Substance: PREDNISONE
  18. VITAMIN D [Concomitant]
     Active Substance: VITAMIN D NOS
  19. OMEPRAZOLE [Concomitant]
     Active Substance: OMEPRAZOLE
     Dosage: 20 MILLIGRAM, QD
  20. CALCIUM [Concomitant]
     Active Substance: CALCIUM
  21. ASPIRIN [Concomitant]
     Active Substance: ASPIRIN
  22. AMLODIPINE [Concomitant]
     Active Substance: AMLODIPINE BESYLATE
  23. BISOPROLOL [Concomitant]
     Active Substance: BISOPROLOL
  24. MONTELUKAST [Concomitant]
     Active Substance: MONTELUKAST
  25. ATORVASTATIN [Concomitant]
     Active Substance: ATORVASTATIN
  26. CLOPIDOGREL [Concomitant]
     Active Substance: CLOPIDOGREL BISULFATE
  27. BETAHISTINE [Concomitant]
     Active Substance: BETAHISTINE

REACTIONS (17)
  - Haematochezia [Not Recovered/Not Resolved]
  - Cerebrovascular accident [Unknown]
  - Glaucoma [Unknown]
  - Blindness [Unknown]
  - Hypoacusis [Unknown]
  - Diarrhoea [Not Recovered/Not Resolved]
  - Stoma site discharge [Not Recovered/Not Resolved]
  - Abnormal faeces [Not Recovered/Not Resolved]
  - Dehydration [Unknown]
  - Blood pressure decreased [Unknown]
  - Balance disorder [Unknown]
  - Memory impairment [Unknown]
  - Malaise [Unknown]
  - Stoma site haemorrhage [Recovered/Resolved]
  - Intraocular pressure increased [Unknown]
  - Abdominal pain [Not Recovered/Not Resolved]
  - Urinary tract infection [Not Recovered/Not Resolved]

NARRATIVE: CASE EVENT DATE: 20170427
